FAERS Safety Report 5469949-5 (Version None)
Quarter: 2007Q3

REPORT INFORMATION
  Report Type: 
  Country: None (occurrence: None)
  Receive Date: 20070927
  Receipt Date: 20070919
  Transmission Date: 20080115
  Serious: Yes (Hospitalization)
  Sender: FDA-Public Use
  Company Number: US-SANOFI-SYNTHELABO-A03200705656

PATIENT
  Sex: Male
  Weight: 64.4 kg

DRUGS (10)
  1. ASPIRIN [Concomitant]
     Route: 048
     Dates: start: 20040101
  2. PLAVIX [Suspect]
     Indication: CARDIAC OPERATION
     Route: 048
     Dates: start: 20040101, end: 20050101
  3. PLAVIX [Suspect]
     Indication: TRANSIENT ISCHAEMIC ATTACK
     Route: 048
     Dates: start: 20040101, end: 20050101
  4. PLAVIX [Suspect]
     Route: 048
     Dates: start: 20060901
  5. PLAVIX [Suspect]
     Route: 048
     Dates: start: 20060901
  6. MULTI-VITAMIN [Concomitant]
     Dosage: UNK
     Route: 048
  7. ULTRAM [Concomitant]
     Route: 048
     Dates: start: 20040101
  8. SOTALOL HYDROCHLORIDE [Concomitant]
     Route: 048
     Dates: start: 20070301
  9. LIPITOR [Concomitant]
     Route: 048
     Dates: start: 20040101
  10. PROSCAR [Concomitant]
     Route: 048
     Dates: start: 20020101

REACTIONS (3)
  - ARRHYTHMIA [None]
  - CONTUSION [None]
  - IMPAIRED HEALING [None]
